FAERS Safety Report 9420638 (Version 1)
Quarter: 2013Q3

REPORT INFORMATION
  Report Type: Spontaneous
  Country: PL (occurrence: PL)
  Receive Date: 20130725
  Receipt Date: 20130725
  Transmission Date: 20140515
  Serious: Yes (Other)
  Sender: FDA-Public Use
  Company Number: PL-ASTRAZENECA-2013SE54256

PATIENT
  Sex: Male
  Weight: 96 kg

DRUGS (6)
  1. BRILIQUE [Suspect]
     Indication: ACUTE CORONARY SYNDROME
     Route: 048
     Dates: start: 20130416
  2. BRILIQUE [Suspect]
     Indication: ACUTE MYOCARDIAL INFARCTION
     Route: 048
     Dates: start: 20130416
  3. ACETYLSALICYLIC ACID [Concomitant]
  4. ATORVASTATIN [Concomitant]
  5. ESOMEPRAZOLE [Concomitant]
  6. RAMIPRIL [Concomitant]

REACTIONS (1)
  - Thrombosis in device [Unknown]
